FAERS Safety Report 16017746 (Version 1)
Quarter: 2019Q1

REPORT INFORMATION
  Report Type: Spontaneous
  Country: US (occurrence: US)
  Receive Date: 20190228
  Receipt Date: 20190228
  Transmission Date: 20190418
  Serious: Yes (Death)
  Sender: FDA-Public Use
  Company Number: None

PATIENT
  Age: 56 Year
  Sex: Male

DRUGS (1)
  1. NEUPOGEN [Suspect]
     Active Substance: FILGRASTIM
     Indication: SQUAMOUS CELL CARCINOMA OF SKIN
     Dosage: ?          OTHER FREQUENCY:INJECT 480MCG SUBC;?
     Route: 058

REACTIONS (1)
  - Death [None]
